FAERS Safety Report 5042196-7 (Version None)
Quarter: 2006Q2

REPORT INFORMATION
  Report Type: 
  Country: None (occurrence: None)
  Receive Date: 20060627
  Receipt Date: 20060613
  Transmission Date: 20061013
  Serious: Yes (Death)
  Sender: FDA-Public Use
  Company Number: 2006BH011010

PATIENT

DRUGS (1)
  1. MORPHINE SULFATE [Suspect]
     Dosage: IV
     Route: 042
     Dates: start: 20051117, end: 20051117

REACTIONS (2)
  - INCORRECT DRUG ADMINISTRATION RATE [None]
  - OVERDOSE [None]
